FAERS Safety Report 6093794-3 (Version None)
Quarter: 2009Q1

REPORT INFORMATION
  Report Type: 
  Country: None (occurrence: None)
  Receive Date: 20090223
  Receipt Date: 20090223
  Transmission Date: 20090719
  Serious: No
  Sender: FDA-Public Use
  Company Number: None

PATIENT
  Age: 25 Year
  Sex: Female
  Weight: 56.6996 kg

DRUGS (1)
  1. YAZ [Suspect]
     Indication: CONTRACEPTION
     Dosage: 3MG / 0.02 MG 1X DIALY PO
     Route: 048
     Dates: start: 20090201, end: 20090222

REACTIONS (7)
  - FUNGAL INFECTION [None]
  - HEADACHE [None]
  - HERPES VIRUS INFECTION [None]
  - METRORRHAGIA [None]
  - MOOD SWINGS [None]
  - NAUSEA [None]
  - STRESS [None]
